FAERS Safety Report 18380461 (Version 1)
Quarter: 2020Q4

REPORT INFORMATION
  Report Type: Spontaneous
  Country: US (occurrence: US)
  Receive Date: 20201014
  Receipt Date: 20201014
  Transmission Date: 20210114
  Serious: No
  Sender: FDA-Public Use
  Company Number: US-ACCORD-194906

PATIENT
  Age: 69 Year
  Sex: Female
  Weight: 79.2 kg

DRUGS (6)
  1. DAPTOMYCIN ACCORD [Suspect]
     Active Substance: DAPTOMYCIN
     Indication: ARTHRITIS BACTERIAL
     Dosage: STRENGTH: 500 MG
     Route: 042
     Dates: start: 20200805, end: 20200805
  2. ZOSYN [Concomitant]
     Active Substance: PIPERACILLIN SODIUM\TAZOBACTAM SODIUM
     Indication: FEBRILE NEUTROPENIA
     Dosage: 4500 MG Q6H
     Route: 042
     Dates: start: 20200727
  3. VALTREX [Concomitant]
     Active Substance: VALACYCLOVIR HYDROCHLORIDE
     Indication: PROPHYLAXIS
     Route: 048
     Dates: start: 20200228
  4. ELIQUIS [Concomitant]
     Active Substance: APIXABAN
     Indication: ATRIAL FIBRILLATION
     Route: 048
     Dates: start: 20200228
  5. VANCOMYCIN [Concomitant]
     Active Substance: VANCOMYCIN
     Indication: ARTHRITIS BACTERIAL
     Dosage: 1000 MG Q12H
     Route: 042
     Dates: start: 20200707, end: 20200805
  6. PANTOPRAZOLE [Concomitant]
     Active Substance: PANTOPRAZOLE
     Indication: GASTROOESOPHAGEAL REFLUX DISEASE
     Route: 048
     Dates: start: 20200228

REACTIONS (4)
  - Pyrexia [Recovered/Resolved]
  - Wheezing [Recovered/Resolved]
  - Chills [Recovered/Resolved]
  - Vasculitis [Recovered/Resolved]

NARRATIVE: CASE EVENT DATE: 20200805
